FAERS Safety Report 10145175 (Version 1)
Quarter: 2014Q2

REPORT INFORMATION
  Report Type: Spontaneous
  Country: US (occurrence: US)
  Receive Date: 20140501
  Receipt Date: 20140501
  Transmission Date: 20141212
  Serious: No
  Sender: FDA-Public Use
  Company Number: US-BIOGENIDEC-2014BI024303

PATIENT
  Sex: Female

DRUGS (14)
  1. TECFIDERA [Suspect]
     Indication: MULTIPLE SCLEROSIS
     Route: 048
     Dates: start: 201401
  2. CYMBALTA [Concomitant]
  3. OXYCONTIN [Concomitant]
  4. CLARITIN [Concomitant]
  5. CALCIUM CITRATE +D [Concomitant]
  6. VITAMIN C [Concomitant]
  7. TAMOXIFEN CITRATE [Concomitant]
  8. AMBIEN [Concomitant]
  9. DIAZEPAM [Concomitant]
  10. MOTRIN IB [Concomitant]
  11. LORTAB [Concomitant]
  12. IRON [Concomitant]
  13. VITAMIN E [Concomitant]
  14. BACLOFEN [Concomitant]

REACTIONS (5)
  - Night sweats [Unknown]
  - Anxiety [Unknown]
  - Nervousness [Unknown]
  - Flushing [Unknown]
  - Hot flush [Unknown]
